FAERS Safety Report 4539736-0 (Version None)
Quarter: 2004Q4

REPORT INFORMATION
  Report Type: 
  Country: None (occurrence: None)
  Receive Date: 20041222
  Receipt Date: 20041208
  Transmission Date: 20050328
  Serious: Yes (Other)
  Sender: FDA-Public Use
  Company Number: 2004113943

PATIENT
  Age: 55 Year
  Sex: Female
  Weight: 79.3795 kg

DRUGS (3)
  1. DEPO-PROVERA [Suspect]
     Indication: CONTRACEPTION
     Dosage: SEE IMAGE
     Dates: start: 20030101, end: 20030101
  2. HYDROCHLOROTHIAZIDE [Concomitant]
  3. NORVASC [Concomitant]

REACTIONS (3)
  - ARTHRALGIA [None]
  - DIABETES MELLITUS [None]
  - PAIN IN EXTREMITY [None]
